FAERS Safety Report 4314884-9 (Version None)
Quarter: 2004Q1

REPORT INFORMATION
  Report Type: 
  Country: None (occurrence: None)
  Receive Date: 20040310
  Receipt Date: 20040310
  Transmission Date: 20041129
  Serious: Yes (Other)
  Sender: FDA-Public Use
  Company Number: None

PATIENT
  Age: 13 Year
  Sex: Female
  Weight: 92.9874 kg

DRUGS (2)
  1. TOPAMAX [Suspect]
     Indication: ATTENTION DEFICIT/HYPERACTIVITY DISORDER
     Dosage: 100 MG 300 MG AT ORAL
     Route: 048
  2. DEPAKOTE [Suspect]
     Indication: BIPOLAR DISORDER
     Dosage: 500 MG 750 MG AT B ORAL
     Route: 048

REACTIONS (17)
  - AGITATION [None]
  - ASTHMA [None]
  - CHEST DISCOMFORT [None]
  - COORDINATION ABNORMAL [None]
  - DEPRESSION [None]
  - DIZZINESS [None]
  - EYE MOVEMENT DISORDER [None]
  - FATIGUE [None]
  - HEADACHE [None]
  - HYPERTENSION [None]
  - HYPOAESTHESIA [None]
  - HYPOTHYROIDISM [None]
  - JAUNDICE [None]
  - MEMORY IMPAIRMENT [None]
  - NAUSEA [None]
  - TREMOR [None]
  - WEIGHT INCREASED [None]
